FAERS Safety Report 14668147 (Version 1)
Quarter: 2018Q1

REPORT INFORMATION
  Report Type: Spontaneous
  Country: US (occurrence: US)
  Receive Date: 20180322
  Receipt Date: 20180322
  Transmission Date: 20180509
  Serious: Yes (Other)
  Sender: FDA-Public Use
  Company Number: US-JAZZ-JPI-P-009384

PATIENT
  Age: 45 Year
  Sex: Female
  Weight: 45.46 kg

DRUGS (4)
  1. XYREM [Suspect]
     Active Substance: SODIUM OXYBATE
     Indication: CATAPLEXY
     Dosage: 3 G BID (1.25 GRAMS AT BEDTIME THEN 2.25 GRAMS)
     Route: 048
  2. XYREM [Suspect]
     Active Substance: SODIUM OXYBATE
     Indication: NARCOLEPSY
     Dosage: 2.2 G, BID
     Route: 048
     Dates: start: 20091203
  3. XYREM [Suspect]
     Active Substance: SODIUM OXYBATE
     Dosage: 1.25 G BID (1.25 GRAMS AT BEDTIME THEN 2.25 GRAMS)
     Route: 048
  4. XYREM [Suspect]
     Active Substance: SODIUM OXYBATE
     Dosage: 2.25 G BID (1.25 GRAMS AT BEDTIME THEN 2.25 GRAMS)
     Route: 048
     Dates: start: 200912, end: 200912

REACTIONS (7)
  - Abdominal discomfort [Unknown]
  - Pain in extremity [Not Recovered/Not Resolved]
  - Headache [Unknown]
  - Vomiting [Unknown]
  - Hemiplegia [Not Recovered/Not Resolved]
  - Condition aggravated [Not Recovered/Not Resolved]
  - Hemiparesis [Not Recovered/Not Resolved]

NARRATIVE: CASE EVENT DATE: 200912
